FAERS Safety Report 23225866 (Version 1)
Quarter: 2023Q4

REPORT INFORMATION
  Report Type: Spontaneous
  Country: US (occurrence: US)
  Receive Date: 20231124
  Receipt Date: 20231124
  Transmission Date: 20240110
  Serious: No
  Sender: FDA-Public Use
  Company Number: US-SAMSUNG BIOEPIS-SB-2022-30072

PATIENT
  Sex: Female

DRUGS (1)
  1. ONTRUZANT [Suspect]
     Active Substance: TRASTUZUMAB-DTTB
     Indication: Product used for unknown indication
     Dosage: UNKNOWN, INJECTION
     Route: 065

REACTIONS (1)
  - Rash [Unknown]
